FAERS Safety Report 16109365 (Version 1)
Quarter: 2019Q1

REPORT INFORMATION
  Report Type: Spontaneous
  Country: SE (occurrence: SE)
  Receive Date: 20190324
  Receipt Date: 20190324
  Transmission Date: 20190418
  Serious: Yes (Other)
  Sender: FDA-Public Use
  Company Number: SE-ACCORD-114863

PATIENT
  Age: 8 Year
  Sex: Female

DRUGS (6)
  1. NEXIUM [Concomitant]
     Active Substance: ESOMEPRAZOLE MAGNESIUM
     Dates: start: 20180412, end: 20181121
  2. FLUTIDE [Concomitant]
     Active Substance: FLUTICASONE PROPIONATE
     Dates: start: 20180411, end: 20181121
  3. AIROMIR [Concomitant]
     Active Substance: ALBUTEROL SULFATE
     Dates: start: 20170905, end: 20181121
  4. ACETYLCYSTEINE. [Concomitant]
     Active Substance: ACETYLCYSTEINE
     Dates: start: 20170804, end: 20181121
  5. VENTOLINE [Concomitant]
     Active Substance: ALBUTEROL
     Dates: start: 20170531, end: 20181121
  6. MONTELUKAST [Suspect]
     Active Substance: MONTELUKAST SODIUM
     Indication: ASTHMA
     Dosage: 5 MG 1X1XX DURING COLD
     Route: 048
     Dates: start: 20180912, end: 20181105

REACTIONS (2)
  - Petit mal epilepsy [Recovered/Resolved]
  - Seizure [Recovered/Resolved]

NARRATIVE: CASE EVENT DATE: 20181105
